FAERS Safety Report 14099149 (Version 4)
Quarter: 2017Q4

REPORT INFORMATION
  Report Type: Report from Study
  Country: DE (occurrence: DE)
  Receive Date: 20171017
  Receipt Date: 20171101
  Transmission Date: 20180321
  Serious: Yes (Hospitalization)
  Sender: FDA-Public Use
  Company Number: DE-B.I. PHARMACEUTICALS,INC./RIDGEFIELD-2017-BI-055664

PATIENT
  Age: 66 Year
  Sex: Female
  Weight: 57 kg

DRUGS (2)
  1. DOCETAXEL. [Suspect]
     Active Substance: DOCETAXEL
     Indication: LUNG ADENOCARCINOMA
     Dosage: TOTAL DAILY DOSE: 60 MG/M2 BSA
     Route: 042
     Dates: start: 20170925
  2. VARGATEF [Suspect]
     Active Substance: NINTEDANIB
     Indication: LUNG ADENOCARCINOMA
     Route: 048
     Dates: start: 20170926

REACTIONS (7)
  - Dysphagia [Recovered/Resolved]
  - Nausea [Recovered/Resolved]
  - Anaemia [Not Recovered/Not Resolved]
  - Hypocalcaemia [Recovered/Resolved]
  - Vomiting [Recovered/Resolved]
  - Diarrhoea [Recovered/Resolved]
  - Platelet count decreased [Recovered/Resolved]

NARRATIVE: CASE EVENT DATE: 20171002
